FAERS Safety Report 21494041 (Version 1)
Quarter: 2022Q4

REPORT INFORMATION
  Report Type: Spontaneous
  Country: US (occurrence: US)
  Receive Date: 20221021
  Receipt Date: 20221021
  Transmission Date: 20230112
  Serious: Yes (Death)
  Sender: FDA-Public Use
  Company Number: US-Fresenius Medical Care Renal Therapies Group-FMC-2210-001712

PATIENT
  Age: 74 Year
  Sex: Male
  Weight: 71.5 kg

DRUGS (1)
  1. DELFLEX WITH DEXTROSE 1.5% LOW MAGNESIUM LOW CALCIUM [Suspect]
     Active Substance: CALCIUM CHLORIDE\DEXTROSE\MAGNESIUM CHLORIDE\SODIUM CHLORIDE\SODIUM LACTATE
     Indication: End stage renal disease
     Dosage: AT 1200 ML FOR 4 CYCLES WITH NO LAST FILL AND NO DAYTIME EXCHANGE, SINCE JULY 2018
     Route: 033

REACTIONS (1)
  - Cardiac failure congestive [Fatal]
